FAERS Safety Report 24913964 (Version 2)
Quarter: 2025Q1

REPORT INFORMATION
  Report Type: Report from Study
  Country: IN (occurrence: IN)
  Receive Date: 20250202
  Receipt Date: 20250207
  Transmission Date: 20250409
  Serious: Yes (Other)
  Sender: CIPLA
  Company Number: IN-CIPLA LTD.-2025IN01156

PATIENT

DRUGS (4)
  1. SPIRONOLACTONE\TORSEMIDE [Suspect]
     Active Substance: SPIRONOLACTONE\TORSEMIDE
     Indication: Fluid retention
     Route: 048
     Dates: start: 202410
  2. METOPROLOL SUCCINATE [Suspect]
     Active Substance: METOPROLOL SUCCINATE
     Indication: Cardiac disorder
     Dosage: 1 DOSAGE FORM, QD (STRENGTH: 50 UNITS UNSPECIFIED)
     Route: 048
     Dates: start: 202410
  3. TELMA [TELMISARTAN] [Concomitant]
     Indication: Product used for unknown indication
     Route: 065
  4. ASPIRIN\ATORVASTATIN [Concomitant]
     Active Substance: ASPIRIN\ATORVASTATIN
     Indication: Product used for unknown indication
     Route: 065

REACTIONS (8)
  - Cardiac disorder [Recovered/Resolved]
  - Dyspnoea [Recovered/Resolved]
  - Lung disorder [Not Recovered/Not Resolved]
  - Abdominal pain upper [Not Recovered/Not Resolved]
  - Anxiety [Recovered/Resolved]
  - Lithiasis [Not Recovered/Not Resolved]
  - Pyrexia [Not Recovered/Not Resolved]
  - Cough [Not Recovered/Not Resolved]

NARRATIVE: CASE EVENT DATE: 20250101
